FAERS Safety Report 10162587 (Version 1)
Quarter: 2014Q2

REPORT INFORMATION
  Report Type: Spontaneous
  Country: AU (occurrence: AU)
  Receive Date: 20140509
  Receipt Date: 20140509
  Transmission Date: 20141212
  Serious: Yes (Hospitalization, Other)
  Sender: FDA-Public Use
  Company Number: AU-ABBVIE-14P-008-1232089-00

PATIENT
  Age: 48 Year
  Sex: Female

DRUGS (4)
  1. HUMIRA [Suspect]
     Indication: RHEUMATOID ARTHRITIS
     Dates: start: 20140331
  2. MOBIC [Concomitant]
     Indication: PRODUCT USED FOR UNKNOWN INDICATION
  3. PANADOL OSTEO [Concomitant]
     Indication: PRODUCT USED FOR UNKNOWN INDICATION
  4. AUGMENTIN [Concomitant]
     Indication: PRODUCT USED FOR UNKNOWN INDICATION

REACTIONS (2)
  - Device dislocation [Not Recovered/Not Resolved]
  - Pneumonia [Not Recovered/Not Resolved]
